FAERS Safety Report 9156012 (Version 2)
Quarter: 2013Q1

REPORT INFORMATION
  Report Type: Spontaneous
  Country: AR (occurrence: AR)
  Receive Date: 20130311
  Receipt Date: 20130319
  Transmission Date: 20140127
  Serious: Yes (Other)
  Sender: FDA-Public Use
  Company Number: AR-BIOMARINAP-AR-2013-100449

PATIENT
  Age: 17 Year
  Sex: Female
  Weight: 23.5 kg

DRUGS (5)
  1. NAGLAZYME [Suspect]
     Indication: MUCOPOLYSACCHARIDOSIS VI
     Dosage: 25 MG, QW
     Route: 041
     Dates: start: 2010
  2. BENADRYL                           /00000402/ [Concomitant]
     Indication: PREMEDICATION
     Route: 042
  3. ATENOLOL [Concomitant]
     Indication: CARDIAC VALVE DISEASE
     Route: 048
  4. FUROSEMIDE [Concomitant]
     Indication: CARDIAC VALVE DISEASE
     Route: 048
  5. POTASSIUM GLUCONATE [Concomitant]
     Indication: CARDIAC VALVE DISEASE
     Route: 048

REACTIONS (3)
  - Spinal cord compression [Not Recovered/Not Resolved]
  - Faecal incontinence [Not Recovered/Not Resolved]
  - Urinary incontinence [Not Recovered/Not Resolved]
